FAERS Safety Report 4680468-6 (Version None)
Quarter: 2005Q2

REPORT INFORMATION
  Report Type: 
  Country: None (occurrence: None)
  Receive Date: 20050531
  Receipt Date: 20050202
  Transmission Date: 20051028
  Serious: No
  Sender: FDA-Public Use
  Company Number: WAES 0502USA00335

PATIENT
  Age: 38 Year
  Sex: Male

DRUGS (2)
  1. ZETIA [Suspect]
     Dosage: 10 MG/DAILY/PO
     Route: 048
     Dates: start: 20040801
  2. TRICOR [Suspect]
     Dates: start: 20041101, end: 20050131

REACTIONS (3)
  - FATIGUE [None]
  - MYALGIA [None]
  - PAIN IN EXTREMITY [None]
